FAERS Safety Report 7691834-9 (Version None)
Quarter: 2011Q3

REPORT INFORMATION
  Report Type: 
  Country: None (occurrence: None)
  Receive Date: 20110818
  Receipt Date: 20110809
  Transmission Date: 20111222
  Serious: Yes (Disabling, Other)
  Sender: FDA-Public Use
  Company Number: US-ASTRAZENECA-2011SE47503

PATIENT
  Sex: Female

DRUGS (1)
  1. NEXIUM [Suspect]
     Route: 048

REACTIONS (5)
  - BLINDNESS [None]
  - OSTEOPOROSIS [None]
  - CERVICAL VERTEBRAL FRACTURE [None]
  - FALL [None]
  - SPINAL FRACTURE [None]
